FAERS Safety Report 12935279 (Version 1)
Quarter: 2016Q4

REPORT INFORMATION
  Report Type: Spontaneous
  Country: US (occurrence: US)
  Receive Date: 20161114
  Receipt Date: 20161114
  Transmission Date: 20170207
  Serious: No
  Sender: FDA-Public Use
  Company Number: US-JAZZ-2016-US-018473

PATIENT
  Sex: Female

DRUGS (42)
  1. LASIX [Concomitant]
     Active Substance: FUROSEMIDE
  2. FISH OIL CONCENTRATE [Concomitant]
     Active Substance: FISH OIL
  3. NASACORT ALLERGY 24HR [Concomitant]
     Active Substance: TRIAMCINOLONE ACETONIDE
  4. MOTRIN IB [Concomitant]
     Active Substance: IBUPROFEN
  5. XYREM [Suspect]
     Active Substance: SODIUM OXYBATE
     Dosage: 2.25 G, BID
     Route: 048
     Dates: start: 200507, end: 200509
  6. XYREM [Suspect]
     Active Substance: SODIUM OXYBATE
     Dosage: 3 G, BID
     Route: 048
     Dates: start: 201505
  7. BENAZEPRIL HCL [Concomitant]
     Active Substance: BENAZEPRIL HYDROCHLORIDE
  8. CALCIUM + VIT D [Concomitant]
     Active Substance: CALCIUM\VITAMIN D
  9. FELDENE [Concomitant]
     Active Substance: PIROXICAM
  10. MULTI DAY MULTIVITAMIN PLUS IRON   /06837501/ [Concomitant]
  11. MOBIC [Concomitant]
     Active Substance: MELOXICAM
  12. ZYRTEC [Concomitant]
     Active Substance: CETIRIZINE HYDROCHLORIDE
  13. BACLOFEN. [Concomitant]
     Active Substance: BACLOFEN
  14. XYREM [Suspect]
     Active Substance: SODIUM OXYBATE
     Dosage: DOSE ADJUSTMENTS
     Route: 048
     Dates: start: 200509, end: 201505
  15. BENZONATATE. [Concomitant]
     Active Substance: BENZONATATE
  16. NUVIGIL [Concomitant]
     Active Substance: ARMODAFINIL
  17. METHOCARBAMOL. [Concomitant]
     Active Substance: METHOCARBAMOL
  18. METHOCARBAMOL. [Concomitant]
     Active Substance: METHOCARBAMOL
  19. ADDERALL XR [Concomitant]
     Active Substance: AMPHETAMINE ASPARTATE\AMPHETAMINE SULFATE\DEXTROAMPHETAMINE SACCHARATE\DEXTROAMPHETAMINE SULFATE
  20. PREDNISONE                         /00044702/ [Concomitant]
     Active Substance: PREDNISONE
  21. KRILL OIL                          /01334101/ [Concomitant]
  22. MAGNESIUM CARBONATE [Concomitant]
     Active Substance: MAGNESIUM CARBONATE
  23. RESTASIS [Concomitant]
     Active Substance: CYCLOSPORINE
  24. MULTIVITAMINS                      /00116001/ [Concomitant]
  25. COREG [Concomitant]
     Active Substance: CARVEDILOL
  26. ADDERALL [Concomitant]
     Active Substance: AMPHETAMINE ASPARTATE\AMPHETAMINE SULFATE\DEXTROAMPHETAMINE SACCHARATE\DEXTROAMPHETAMINE SULFATE
  27. ESTRACE [Concomitant]
     Active Substance: ESTRADIOL
  28. DURAHIST [Concomitant]
  29. NAPROSYN [Concomitant]
     Active Substance: NAPROXEN
  30. DESOXIMETASONE. [Concomitant]
     Active Substance: DESOXIMETASONE
  31. CLARITIN [Concomitant]
     Active Substance: LORATADINE
  32. RHINOCORT                          /00212602/ [Concomitant]
  33. TYLENOL WITH CODEINE [Concomitant]
     Active Substance: ACETAMINOPHEN\CODEINE PHOSPHATE
  34. GUAIFENESIN DM [Concomitant]
     Active Substance: DEXTROMETHORPHAN\DEXTROMETHORPHAN HYDROBROMIDE\GUAIFENESIN
  35. HAIR, SKIN + NAILS                 /00772301/ [Concomitant]
  36. FLONASE ALLERGY RLF                            /00908302/ [Concomitant]
  37. XYREM [Suspect]
     Active Substance: SODIUM OXYBATE
     Indication: NARCOLEPSY
     Dosage: 2.25 G, BID
     Route: 048
     Dates: start: 200308, end: 2003
  38. TRAMADOL HCL [Concomitant]
     Active Substance: TRAMADOL HYDROCHLORIDE
  39. LOTREL                             /01388302/ [Concomitant]
  40. ZOLOFT [Concomitant]
     Active Substance: SERTRALINE HYDROCHLORIDE
  41. GLUCOSAMINE CHONDROITIN + MSM [Concomitant]
     Active Substance: CHONDROITIN SULFATE (BOVINE)\DIMETHYL SULFONE\GLUCOSAMINE SULFATE
  42. KETOCONAZOLE. [Concomitant]
     Active Substance: KETOCONAZOLE

REACTIONS (1)
  - Memory impairment [Unknown]
